FAERS Safety Report 6274254-3 (Version None)
Quarter: 2009Q3

REPORT INFORMATION
  Report Type: 
  Country: None (occurrence: None)
  Receive Date: 20090720
  Receipt Date: 20090712
  Transmission Date: 20100115
  Serious: Yes (Hospitalization)
  Sender: FDA-Public Use
  Company Number: PT-JNJFOC-20090705700

PATIENT
  Age: 28 Year
  Sex: Male

DRUGS (4)
  1. HALOPERIDOL DECANOATE [Suspect]
     Indication: SCHIZOPHRENIA
     Route: 030
  2. OLANZAPINE [Suspect]
     Indication: SCHIZOPHRENIA
  3. LORAZEPAM [Concomitant]
     Route: 065
  4. LORAZEPAM [Concomitant]
     Indication: SCHIZOPHRENIA
     Route: 065

REACTIONS (5)
  - APATHY [None]
  - CONDITION AGGRAVATED [None]
  - DECREASED ACTIVITY [None]
  - WEIGHT INCREASED [None]
  - WITHDRAWAL SYNDROME [None]
